FAERS Safety Report 11201213 (Version 2)
Quarter: 2015Q3

REPORT INFORMATION
  Report Type: Spontaneous
  Country: US (occurrence: US)
  Receive Date: 20150619
  Receipt Date: 20150721
  Transmission Date: 20151125
  Serious: No
  Sender: FDA-Public Use
  Company Number: US-009507513-1506USA006685

PATIENT
  Sex: Male

DRUGS (2)
  1. PROPECIA [Suspect]
     Active Substance: FINASTERIDE
     Dosage: UNK
     Route: 048
  2. PROSCAR [Suspect]
     Active Substance: FINASTERIDE
     Dosage: UNK
     Route: 048

REACTIONS (2)
  - Therapeutic response decreased [Unknown]
  - Alopecia [Unknown]
